FAERS Safety Report 11450832 (Version 1)
Quarter: 2015Q3

REPORT INFORMATION
  Report Type: Spontaneous
  Country: US (occurrence: US)
  Receive Date: 20150903
  Receipt Date: 20150903
  Transmission Date: 20151125
  Serious: No
  Sender: FDA-Public Use
  Company Number: US-ROCHE-1080364

PATIENT
  Sex: Male

DRUGS (2)
  1. PEGASYS [Suspect]
     Active Substance: PEGINTERFERON ALFA-2A
     Indication: CHRONIC HEPATITIS C
     Dosage: 24 WEEKS LENGTH THERAPY
     Route: 058
     Dates: start: 20120505
  2. RIBAVIRIN. [Suspect]
     Active Substance: RIBAVIRIN
     Indication: CHRONIC HEPATITIS C
     Dosage: DIVIDED DOSES, 24 WEEKS LENGTH THERAPY
     Route: 048
     Dates: start: 20120505

REACTIONS (5)
  - Irritability [Unknown]
  - Fatigue [Unknown]
  - Insomnia [Unknown]
  - Myalgia [Unknown]
  - Nausea [Unknown]
